FAERS Safety Report 5625301-0 (Version None)
Quarter: 2008Q1

REPORT INFORMATION
  Report Type: 
  Country: None (occurrence: None)
  Receive Date: 20080213
  Receipt Date: 20080206
  Transmission Date: 20080703
  Serious: Yes (Hospitalization)
  Sender: FDA-Public Use
  Company Number: PHHO2007US14698

PATIENT
  Age: 29 Year
  Sex: Female
  Weight: 42.3 kg

DRUGS (2)
  1. MYFORTIC [Suspect]
     Indication: RENAL TRANSPLANT
     Dosage: 540 MG, BID
     Route: 048
     Dates: start: 20070505, end: 20070906
  2. RAPAMUNE [Concomitant]
     Indication: RENAL TRANSPLANT
     Dosage: 5MG, DAILY
     Route: 048
     Dates: start: 20060624, end: 20070906

REACTIONS (8)
  - BODY TEMPERATURE INCREASED [None]
  - CHILLS [None]
  - COUGH [None]
  - FATIGUE [None]
  - HEADACHE [None]
  - PHARYNGOLARYNGEAL PAIN [None]
  - PYREXIA [None]
  - WEIGHT DECREASED [None]
